FAERS Safety Report 12957229 (Version 2)
Quarter: 2016Q4

REPORT INFORMATION
  Report Type: Spontaneous
  Country: JP (occurrence: JP)
  Receive Date: 20161118
  Receipt Date: 20161208
  Transmission Date: 20170207
  Serious: Yes (Other)
  Sender: FDA-Public Use
  Company Number: JP-PFIZER INC-2016532036

PATIENT
  Age: 75 Year
  Sex: Female

DRUGS (1)
  1. METHOTREXATE SODIUM. [Suspect]
     Active Substance: METHOTREXATE SODIUM
     Indication: RHEUMATOID ARTHRITIS
     Dosage: 7.5 MG, WEEKLY (3 DOSES OF 2.5 MG AT 12-H INTERVALS)

REACTIONS (6)
  - Malaise [Unknown]
  - Stomatitis [Unknown]
  - Renal disorder [Unknown]
  - Headache [Unknown]
  - Stomatitis haemorrhagic [Unknown]
  - Bone marrow failure [Unknown]
